FAERS Safety Report 21838241 (Version 6)
Quarter: 2023Q2

REPORT INFORMATION
  Report Type: Spontaneous
  Country: US (occurrence: US)
  Receive Date: 20230109
  Receipt Date: 20230413
  Transmission Date: 20230721
  Serious: Yes (Other)
  Sender: FDA-Public Use
  Company Number: US-PFIZER INC-PV202300003911

PATIENT
  Age: 59 Year
  Sex: Female
  Weight: 52.154 kg

DRUGS (1)
  1. PREMARIN [Suspect]
     Active Substance: ESTROGENS, CONJUGATED
     Indication: Menopause
     Dosage: 0.45 MG, 1X/DAY
     Route: 048

REACTIONS (4)
  - Drug ineffective [Unknown]
  - Product complaint [Unknown]
  - Migraine [Recovered/Resolved]
  - Intermenstrual bleeding [Recovered/Resolved]

NARRATIVE: CASE EVENT DATE: 20221201
